FAERS Safety Report 6246171-6 (Version None)
Quarter: 2009Q2

REPORT INFORMATION
  Report Type: 
  Country: None (occurrence: None)
  Receive Date: 20090626
  Receipt Date: 20090617
  Transmission Date: 20091009
  Serious: Yes (Hospitalization, Other)
  Sender: FDA-Public Use
  Company Number: US-BIOGENIDEC-2009BI016025

PATIENT
  Age: 66 Year
  Sex: Female
  Weight: 86 kg

DRUGS (11)
  1. AVONEX [Suspect]
     Indication: MULTIPLE SCLEROSIS
     Route: 030
     Dates: start: 20001102
  2. VESICARE [Concomitant]
     Indication: POLLAKIURIA
     Route: 048
  3. VESICARE [Concomitant]
     Indication: MICTURITION URGENCY
     Route: 048
  4. SIMVASTATIN [Concomitant]
     Route: 048
  5. METOPROLOL TARTRATE [Concomitant]
     Route: 048
  6. LISINOPRIL [Concomitant]
     Route: 048
  7. AMLODIPINE [Concomitant]
     Route: 048
  8. RANITIDINE [Concomitant]
     Route: 048
  9. VITAMIN D [Concomitant]
     Route: 048
  10. PLAVIX [Concomitant]
     Indication: BRAIN STEM INFARCTION
     Route: 048
  11. ASPIRIN [Concomitant]
     Indication: BRAIN STEM INFARCTION
     Route: 048

REACTIONS (15)
  - BRAIN STEM INFARCTION [None]
  - CAROTID ARTERIOSCLEROSIS [None]
  - COLONIC POLYP [None]
  - DIVERTICULUM INTESTINAL [None]
  - GOITRE [None]
  - HAEMORRHOIDS [None]
  - HEADACHE [None]
  - HYPERCHOLESTEROLAEMIA [None]
  - HYPERTENSION [None]
  - METABOLIC SYNDROME [None]
  - MICTURITION URGENCY [None]
  - MULTIPLE SCLEROSIS RELAPSE [None]
  - OBESITY [None]
  - POLLAKIURIA [None]
  - TYPE 2 DIABETES MELLITUS [None]
